FAERS Safety Report 18157443 (Version 1)
Quarter: 2020Q3

REPORT INFORMATION
  Report Type: Spontaneous
  Country: US (occurrence: US)
  Receive Date: 20200817
  Receipt Date: 20200817
  Transmission Date: 20201103
  Serious: No
  Sender: FDA-Public Use
  Company Number: US-SPECGX-T202000338

PATIENT

DRUGS (1)
  1. OXYCODONE [Suspect]
     Active Substance: OXYCODONE
     Indication: PRODUCT USED FOR UNKNOWN INDICATION
     Dosage: UNK
     Route: 065

REACTIONS (7)
  - Myalgia [Unknown]
  - Ligament pain [Unknown]
  - Loss of personal independence in daily activities [Unknown]
  - Headache [Unknown]
  - Therapeutic product effect decreased [Unknown]
  - Palpitations [Unknown]
  - Arthralgia [Unknown]
